FAERS Safety Report 8187837-0 (Version None)
Quarter: 2012Q1

REPORT INFORMATION
  Report Type: 
  Country: None (occurrence: None)
  Receive Date: 20120302
  Receipt Date: 20120215
  Transmission Date: 20120608
  Serious: Yes (Disabling)
  Sender: FDA-Public Use
  Company Number: DSA_55154_2012

PATIENT
  Sex: Female
  Weight: 89.8122 kg

DRUGS (21)
  1. HUMULIN R [Suspect]
     Indication: DIABETES MELLITUS
     Dosage: 24 IU TID
  2. LOMOTIL [Suspect]
     Indication: CROHN'S DISEASE
     Dosage: 2.5 MG QID ORAL
     Route: 048
  3. ATENOLOL [Suspect]
     Indication: HYPERTENSION
     Dosage: 25 MG QD ORAL
     Route: 048
  4. NITROSTAT [Suspect]
     Indication: CHEST PAIN
     Dosage: 0.4 MG, AS NEEDED
  5. DEPAKOTE [Suspect]
     Indication: CONVULSION
     Dosage: 500 MG BID ORAL
     Route: 048
  6. SIMVASTATIN [Suspect]
     Indication: BLOOD CHOLESTEROL INCREASED
     Dosage: 40 MG QD ORAL
     Route: 048
  7. ACETAMINOPHEN W/ CODEINE NO. 3 [Suspect]
     Indication: MIGRAINE
     Dosage: DF, DAIL
  8. METHOCARBAMOL [Suspect]
     Indication: MUSCLE SPASMS
     Dosage: 750 MG, AS NEEDED ORAL
     Route: 048
  9. METHOCARBAMOL [Suspect]
     Indication: NEUROPATHY PERIPHERAL
     Dosage: 750 MG, AS NEEDED ORAL
     Route: 048
  10. REMERON [Suspect]
     Indication: INSOMNIA
     Dosage: 30 MG QD ORAL
     Route: 048
  11. ATIVAN [Suspect]
     Indication: NERVOUSNESS
     Dosage: 1 MG TID ORAL
     Route: 048
  12. LANTUS [Suspect]
     Indication: DIABETES MELLITUS
     Dosage: 170 IU, 80 UNITS IN THE MORNING AND 90 UNITS AT NIGHT
  13. ANTIDEPRESSANTS [Suspect]
     Indication: DEPRESSION
     Dosage: DF
  14. ISOSORBIDE MONONITRATE [Suspect]
     Indication: CARDIAC DISORDER
     Dosage: 30 MG TID
  15. GENERLAC [Suspect]
     Indication: CROHN'S DISEASE
     Dosage: 30 MG, AS NEEDED
  16. FUROSEMIDE [Suspect]
     Indication: DIURETIC THERAPY
     Dosage: 40 MG BID ORAL
     Route: 048
  17. POTASSIUM CHLORIDE [Suspect]
     Indication: MINERAL SUPPLEMENTATION
     Dosage: 8 MEQ QD
  18. DILANTIN [Suspect]
     Indication: CONVULSION
     Dosage: 300 MG BID ORAL
     Route: 048
  19. ZANTAC [Suspect]
     Indication: GASTROOESOPHAGEAL REFLUX DISEASE
     Dosage: 300 MG TID
  20. ASPIRIN [Suspect]
     Indication: CHEST PAIN
     Dosage: 81 MG, AS NEEDED
  21. NORVASC [Suspect]
     Indication: CARDIAC DISORDER
     Dosage: DF ORAL
     Route: 048

REACTIONS (4)
  - EMPHYSEMA [None]
  - AMNESIA [None]
  - CHRONIC OBSTRUCTIVE PULMONARY DISEASE [None]
  - BEDRIDDEN [None]
